FAERS Safety Report 17399114 (Version 1)
Quarter: 2020Q1

REPORT INFORMATION
  Report Type: Report from Study
  Country: KR (occurrence: KR)
  Receive Date: 20200210
  Receipt Date: 20200210
  Transmission Date: 20200409
  Serious: Yes (Hospitalization)
  Sender: FDA-Public Use
  Company Number: KR-DSJP-DSJ-2020-104642AA

PATIENT

DRUGS (1)
  1. EDOXABAN [Suspect]
     Active Substance: EDOXABAN TOSYLATE
     Indication: PRODUCT USED FOR UNKNOWN INDICATION
     Dosage: 30 MG, DAILY
     Route: 048
     Dates: start: 20190208

REACTIONS (2)
  - Pleural effusion [Unknown]
  - Dyspnoea [Recovered/Resolved]

NARRATIVE: CASE EVENT DATE: 20200129
